FAERS Safety Report 9399251 (Version 1)
Quarter: 2013Q3

REPORT INFORMATION
  Report Type: Spontaneous
  Country: DK (occurrence: None)
  Receive Date: 20130709
  Receipt Date: 20130709
  Transmission Date: 20140515
  Serious: Yes (Hospitalization)
  Sender: FDA-Public Use
  Company Number: 2013P1010856

PATIENT
  Age: 80 Year
  Sex: Male

DRUGS (9)
  1. CEFUROXIME [Suspect]
     Indication: PROPHYLAXIS
     Route: 042
  2. DICLOXACILLIN [Suspect]
     Indication: PROPHYLAXIS
     Route: 042
  3. CEPHALEXIN [Suspect]
     Indication: PROPHYLAXIS
     Route: 048
  4. BICALUTAMIDE [Concomitant]
  5. SOLIFENACIN [Concomitant]
  6. TAMSULOSIN [Concomitant]
  7. SIMVASTATIN [Concomitant]
  8. LOSARTAN [Concomitant]
  9. CLOPIDOGREL [Concomitant]

REACTIONS (7)
  - Abdominal discomfort [None]
  - Constipation [None]
  - Sepsis [None]
  - Hypotension [None]
  - Renal failure [None]
  - Pseudomembranous colitis [None]
  - Clostridium difficile colitis [None]
